FAERS Safety Report 5990470-X (Version None)
Quarter: 2008Q4

REPORT INFORMATION
  Report Type: 
  Country: None (occurrence: None)
  Receive Date: 20081202
  Receipt Date: 20080428
  Transmission Date: 20090506
  Serious: Yes (Disabling)
  Sender: FDA-Public Use
  Company Number: WAES 0804USA06323

PATIENT
  Age: 84 Year
  Sex: Female
  Weight: 50.8029 kg

DRUGS (6)
  1. FOSAMAX [Suspect]
     Indication: OSTEOPOROSIS
     Dosage: 70 MG/WKY/PO
     Route: 048
     Dates: start: 20071012, end: 20071026
  2. LASIX [Concomitant]
  3. SYNTHROID [Concomitant]
  4. VYTORIN [Concomitant]
  5. SPIRONOLACTONE [Concomitant]
  6. WARFARIN SODIUM [Concomitant]

REACTIONS (3)
  - ARTHRALGIA [None]
  - DYSPHAGIA [None]
  - NAUSEA [None]
